FAERS Safety Report 6968902-X (Version None)
Quarter: 2010Q3

REPORT INFORMATION
  Report Type: 
  Country: None (occurrence: None)
  Receive Date: 20100907
  Receipt Date: 20100830
  Transmission Date: 20110219
  Serious: Yes (Death, Hospitalization)
  Sender: FDA-Public Use
  Company Number: US-GENZYME-CLOF-1000572

PATIENT
  Sex: Male
  Weight: 99.1 kg

DRUGS (6)
  1. CLOFARABINE [Suspect]
     Indication: ACUTE MYELOID LEUKAEMIA
     Dosage: 10 MG, QDX5 DAYS 1-5
     Route: 048
     Dates: start: 20090413, end: 20090417
  2. ARA-C [Suspect]
     Indication: ACUTE MYELOID LEUKAEMIA
     Dosage: 20 MG, BID
     Route: 058
     Dates: start: 20090413, end: 20090422
  3. AMICAR [Concomitant]
     Indication: PRODUCT USED FOR UNKNOWN INDICATION
  4. LEVAQUIN [Concomitant]
     Indication: PRODUCT USED FOR UNKNOWN INDICATION
  5. FLUCONAZOLE [Concomitant]
     Indication: PRODUCT USED FOR UNKNOWN INDICATION
  6. LASIX [Concomitant]
     Indication: PRODUCT USED FOR UNKNOWN INDICATION

REACTIONS (3)
  - DISEASE PROGRESSION [None]
  - PNEUMONIA [None]
  - RESPIRATORY FAILURE [None]
